FAERS Safety Report 7076282-7 (Version None)
Quarter: 2010Q4

REPORT INFORMATION
  Report Type: 
  Country: None (occurrence: None)
  Receive Date: 20101101
  Receipt Date: 20101018
  Transmission Date: 20110411
  Serious: Yes (Other)
  Sender: FDA-Public Use
  Company Number: IT-RANBAXY-2010RR-39023

PATIENT
  Age: 80 Year
  Sex: Female

DRUGS (5)
  1. TAVANIC [Suspect]
     Dosage: UNK
     Dates: start: 20101001, end: 20101006
  2. COUMADIN [Suspect]
     Indication: DEEP VEIN THROMBOSIS
     Dosage: 48.75 MG, UNK
     Route: 048
     Dates: start: 20051216, end: 20101011
  3. DICLOREUM [Suspect]
     Indication: ARTHRALGIA
     Dosage: UNK
     Dates: start: 20101001, end: 20101006
  4. AMOXICILLIN AND CLAVULANATE POTASSIUM [Suspect]
     Indication: BRONCHITIS
     Dosage: UNK
     Route: 048
     Dates: start: 20101001, end: 20101006
  5. BENTELAN [Suspect]
     Dosage: UNK
     Dates: start: 20101001, end: 20101006

REACTIONS (1)
  - INTERNATIONAL NORMALISED RATIO INCREASED [None]
